FAERS Safety Report 24891037 (Version 2)
Quarter: 2025Q2

REPORT INFORMATION
  Report Type: Report from Study
  Country: US (occurrence: US)
  Receive Date: 20250127
  Receipt Date: 20250530
  Transmission Date: 20250716
  Serious: Yes (Hospitalization, Other)
  Sender: UCB
  Company Number: US-UCBSA-2025004020

PATIENT
  Age: 63 Year
  Sex: Male

DRUGS (2)
  1. ROZANOLIXIZUMAB [Suspect]
     Active Substance: ROZANOLIXIZUMAB
     Indication: Myasthenia gravis
     Dosage: 560 MILLIGRAM/4ML VIAL WEEKLY (QW)
     Route: 058
     Dates: start: 20241119
  2. ROZANOLIXIZUMAB [Suspect]
     Active Substance: ROZANOLIXIZUMAB
     Dosage: 560 MILLIGRAM/4ML VIAL WEEKLY (QW)
     Route: 058
     Dates: start: 20250228

REACTIONS (5)
  - Sinusitis [Recovered/Resolved with Sequelae]
  - Dyspnoea [Recovered/Resolved with Sequelae]
  - Asthenia [Recovered/Resolved with Sequelae]
  - Myasthenia gravis [Recovered/Resolved with Sequelae]
  - Therapeutic response shortened [Unknown]

NARRATIVE: CASE EVENT DATE: 20250115
